FAERS Safety Report 9925482 (Version 1)
Quarter: 2014Q1

REPORT INFORMATION
  Report Type: Report from Study
  Country: US (occurrence: US)
  Receive Date: 20140226
  Receipt Date: 20140226
  Transmission Date: 20141002
  Serious: No
  Sender: FDA-Public Use
  Company Number: US-ALEXION-A201400484

PATIENT
  Age: 58 Year
  Sex: Female

DRUGS (2)
  1. SOLIRIS [Suspect]
     Indication: PAROXYSMAL NOCTURNAL HAEMOGLOBINURIA
     Dosage: 900 MG EVERY 14 DAYS
     Route: 042
     Dates: start: 20071220
  2. MULTIVITAMIN                       /00097801/ [Concomitant]
     Dosage: 1 TAB DAILY
     Route: 048
     Dates: start: 20120913

REACTIONS (1)
  - Upper respiratory tract infection [Recovered/Resolved]
